FAERS Safety Report 14457266 (Version 4)
Quarter: 2018Q2

REPORT INFORMATION
  Report Type: Report from Study
  Country: US (occurrence: US)
  Receive Date: 20180130
  Receipt Date: 20180416
  Transmission Date: 20180711
  Serious: Yes (Other)
  Sender: FDA-Public Use
  Company Number: US-JNJFOC-20180129461

PATIENT
  Age: 74 Year
  Sex: Female

DRUGS (20)
  1. SPIRONOLACTONE. [Concomitant]
     Active Substance: SPIRONOLACTONE
  2. WARFARIN [Concomitant]
     Active Substance: WARFARIN
  3. VITAMIN K NOS [Concomitant]
     Active Substance: DIETARY SUPPLEMENT\ MENAQUINONE 6\PHYTONADIONE
  4. PHYTOMENADIONE [Concomitant]
     Active Substance: PHYTONADIONE
     Route: 048
  5. IMBRUVICA [Suspect]
     Active Substance: IBRUTINIB
     Indication: CHRONIC LYMPHOCYTIC LEUKAEMIA
     Route: 048
     Dates: start: 20161031
  6. SALBUTAMOL SULFATE [Concomitant]
     Active Substance: ALBUTEROL SULFATE
  7. IRON [Concomitant]
     Active Substance: IRON
  8. ACYCLOVIR. [Concomitant]
     Active Substance: ACYCLOVIR
  9. IMBRUVICA [Suspect]
     Active Substance: IBRUTINIB
     Indication: CHRONIC LYMPHOCYTIC LEUKAEMIA
     Route: 048
     Dates: start: 20140404
  10. ATIVAN [Concomitant]
     Active Substance: LORAZEPAM
     Indication: ANXIETY
     Dosage: TAKE 1-2 TABLETS BY MOUTH AT BEDTIME
     Route: 048
  11. FERROUS SULFATE. [Concomitant]
     Active Substance: FERROUS SULFATE
     Route: 048
  12. IMBRUVICA [Suspect]
     Active Substance: IBRUTINIB
     Indication: CHRONIC LYMPHOCYTIC LEUKAEMIA
     Route: 048
     Dates: start: 20151224
  13. EFFEXOR [Concomitant]
     Active Substance: VENLAFAXINE HYDROCHLORIDE
     Route: 048
  14. KLOR-CON M20 [Concomitant]
     Active Substance: POTASSIUM CHLORIDE
  15. CLARITIN [Concomitant]
     Active Substance: LORATADINE
  16. MOMETASONE FUROATE. [Concomitant]
     Active Substance: MOMETASONE FUROATE
  17. CENTRUM [Concomitant]
     Active Substance: VITAMINS
     Route: 048
  18. VITAMIN D3 [Concomitant]
     Active Substance: CHOLECALCIFEROL
     Dosage: 2000 UNIT, QD
     Route: 048
  19. VITAMIN D [Concomitant]
     Active Substance: CHOLECALCIFEROL
  20. FLUTICASONE PROPIONATE. [Concomitant]
     Active Substance: FLUTICASONE PROPIONATE

REACTIONS (17)
  - Retinal tear [Unknown]
  - Cataract [Unknown]
  - Cervicitis human papilloma virus [Unknown]
  - Insomnia [Unknown]
  - Anxiety [Unknown]
  - Liver function test increased [Unknown]
  - Stress urinary incontinence [Unknown]
  - Depression [Unknown]
  - White blood cell count increased [Recovered/Resolved]
  - Drug ineffective [Unknown]
  - Periorbital haemorrhage [Unknown]
  - Sinusitis [Unknown]
  - Vitamin D deficiency [Unknown]
  - Prostatic specific antigen decreased [Unknown]
  - Vitreous detachment [Unknown]
  - Conjunctival haemorrhage [Unknown]
  - Blood pressure increased [Unknown]

NARRATIVE: CASE EVENT DATE: 20140414
